FAERS Safety Report 9192128 (Version 1)
Quarter: 2013Q1

REPORT INFORMATION
  Report Type: Spontaneous
  Country: GB (occurrence: None)
  Receive Date: 20130325
  Receipt Date: 20130325
  Transmission Date: 20140127
  Serious: Yes (Other)
  Sender: FDA-Public Use
  Company Number: 2013-05109

PATIENT
  Sex: Female

DRUGS (3)
  1. VENLAFAXINE (VENLAFAXINE HYDROCHLORIDE) (UNKNOWN) (VENLAFAXINE HYDROCHLORIDE) [Suspect]
     Indication: DEPRESSION
     Dosage: 150  MG, UNK, ORAL
     Route: 048
     Dates: start: 2006
  2. PROPANOLOL HCL [Suspect]
     Dosage: , ORAL
     Route: 048
     Dates: start: 201212, end: 201302
  3. CERAZETTE/ /(CEFALORIDINE) [Concomitant]

REACTIONS (4)
  - Disturbance in sexual arousal [None]
  - Fatigue [None]
  - Anorgasmia [None]
  - Disturbance in attention [None]
